FAERS Safety Report 21163199 (Version 2)
Quarter: 2022Q3

REPORT INFORMATION
  Report Type: Spontaneous
  Country: JP (occurrence: JP)
  Receive Date: 20220802
  Receipt Date: 20220811
  Transmission Date: 20221026
  Serious: Yes (Hospitalization, Other)
  Sender: FDA-Public Use
  Company Number: JP-TAKEDA-2022TUS052226

PATIENT
  Age: 57 Year
  Sex: Female

DRUGS (1)
  1. LIALDA [Suspect]
     Active Substance: MESALAMINE
     Indication: Colitis ulcerative
     Dosage: 4000 MILLIGRAM, QD
     Route: 048
     Dates: start: 20200529

REACTIONS (1)
  - Endometrial cancer [Recovering/Resolving]

NARRATIVE: CASE EVENT DATE: 20210729
